FAERS Safety Report 23797043 (Version 4)
Quarter: 2024Q2

REPORT INFORMATION
  Report Type: Spontaneous
  Country: US (occurrence: None)
  Receive Date: 20240430
  Receipt Date: 20240605
  Transmission Date: 20240716
  Serious: Yes (Other)
  Sender: FDA-Public Use
  Company Number: US-ROCHE-3552237

PATIENT

DRUGS (4)
  1. VABYSMO [Suspect]
     Active Substance: FARICIMAB\FARICIMAB-SVOA
     Indication: Product used for unknown indication
     Dosage: STRENGTH:6MG/0.05ML
     Route: 050
     Dates: start: 20240419
  2. PREDNISOLONE [Concomitant]
     Active Substance: PREDNISOLONE
  3. MOXI [Concomitant]
  4. ATROPINE [Concomitant]
     Active Substance: ATROPINE\ATROPINE SULFATE

REACTIONS (3)
  - Endophthalmitis [Recovering/Resolving]
  - Suspected transmission of an infectious agent via product [Unknown]
  - Off label use [Unknown]

NARRATIVE: CASE EVENT DATE: 20240423
